FAERS Safety Report 10285168 (Version 3)
Quarter: 2014Q4

REPORT INFORMATION
  Report Type: Report from Study
  Country: US (occurrence: US)
  Receive Date: 20140708
  Receipt Date: 20141016
  Transmission Date: 20150528
  Serious: Yes (Other)
  Sender: FDA-Public Use
  Company Number: US-SA-2014SA022228

PATIENT
  Age: 44 Year
  Sex: Male

DRUGS (2)
  1. AUBAGIO [Suspect]
     Active Substance: TERIFLUNOMIDE
     Indication: MULTIPLE SCLEROSIS
     Route: 048
     Dates: start: 20141007
  2. AUBAGIO [Suspect]
     Active Substance: TERIFLUNOMIDE
     Indication: MULTIPLE SCLEROSIS
     Route: 048
     Dates: start: 20130927, end: 20141005

REACTIONS (7)
  - Memory impairment [Unknown]
  - Blister [Not Recovered/Not Resolved]
  - Asthenia [Unknown]
  - Nasopharyngitis [Unknown]
  - Wheelchair user [Unknown]
  - Drug dose omission [Unknown]
  - Bronchitis [Unknown]

NARRATIVE: CASE EVENT DATE: 20140218
